FAERS Safety Report 11805308 (Version 1)
Quarter: 2015Q4

REPORT INFORMATION
  Report Type: Spontaneous
  Country: AU (occurrence: AU)
  Receive Date: 20151206
  Receipt Date: 20151206
  Transmission Date: 20160305
  Serious: Yes (Life-Threatening, Other)
  Sender: FDA-Public Use
  Company Number: AU-ROCHE-1669134

PATIENT
  Sex: Female

DRUGS (6)
  1. PARACETAMOL [Concomitant]
     Active Substance: ACETAMINOPHEN
  2. CYCLOPHOSPHAMIDE. [Suspect]
     Active Substance: CYCLOPHOSPHAMIDE
     Indication: GRANULOMATOSIS WITH POLYANGIITIS
     Route: 065
  3. MABTHERA [Suspect]
     Active Substance: RITUXIMAB
     Indication: GRANULOMATOSIS WITH POLYANGIITIS
     Dosage: 375 MG/METRE SQUARED WEEKLY FOR FOUR WEEKS WHICH WOULD TRANSLATE TO A DOSAGE OF 750 MG WEEKLY, FOR F
     Route: 042
     Dates: start: 201503, end: 201504
  4. PREDNISONE. [Suspect]
     Active Substance: PREDNISONE
     Indication: GRANULOMATOSIS WITH POLYANGIITIS
     Route: 065
  5. HYDROCORTISONE. [Concomitant]
     Active Substance: HYDROCORTISONE
     Route: 065
  6. METHOTREXATE [Suspect]
     Active Substance: METHOTREXATE
     Indication: GRANULOMATOSIS WITH POLYANGIITIS
     Route: 065

REACTIONS (8)
  - Intestinal resection [Unknown]
  - Renal disorder [Unknown]
  - Skin disorder [Unknown]
  - Lung disorder [Unknown]
  - Terminal state [Unknown]
  - Intestinal perforation [Unknown]
  - Eye disorder [Unknown]
  - Arthropathy [Unknown]
